FAERS Safety Report 22646423 (Version 1)
Quarter: 2023Q2

REPORT INFORMATION
  Report Type: Spontaneous
  Country: US (occurrence: US)
  Receive Date: 20230627
  Receipt Date: 20230627
  Transmission Date: 20230721
  Serious: Yes (Hospitalization)
  Sender: FDA-Public Use
  Company Number: US-AMGEN-USASP2023108982

PATIENT
  Age: 43 Year
  Sex: Female

DRUGS (2)
  1. TAVNEOS [Suspect]
     Active Substance: AVACOPAN
     Indication: Arteritis
     Dosage: 30 MILLIGRAM, BID, WITH FOOD
     Route: 048
     Dates: start: 20221122
  2. TAVNEOS [Suspect]
     Active Substance: AVACOPAN
     Indication: Off label use

REACTIONS (2)
  - High frequency ablation [Unknown]
  - Off label use [Unknown]

NARRATIVE: CASE EVENT DATE: 20221122
